FAERS Safety Report 10483588 (Version 1)
Quarter: 2014Q3

REPORT INFORMATION
  Report Type: Spontaneous
  Country: US (occurrence: None)
  Receive Date: 20140929
  Receipt Date: 20140929
  Transmission Date: 20150326
  Serious: Yes (Disabling, Other)
  Sender: FDA-Public Use
  Company Number: None

PATIENT
  Age: 71 Year
  Sex: Male
  Weight: 72.58 kg

DRUGS (1)
  1. DALIRESP [Suspect]
     Active Substance: ROFLUMILAST
     Indication: PULMONARY CONGESTION
     Dosage: ABOUT TWO WEEKS MAX., ONE TABLET DAILY, ONCE DAILY, TAKEN BY MOUTH
     Route: 048

REACTIONS (9)
  - Urticaria [None]
  - Lip dry [None]
  - Dry mouth [None]
  - Gingival blister [None]
  - Hypoaesthesia oral [None]
  - Lip blister [None]
  - Herpes virus infection [None]
  - Lip haemorrhage [None]
  - Erythema multiforme [None]

NARRATIVE: CASE EVENT DATE: 20140619
